FAERS Safety Report 6921548-1 (Version None)
Quarter: 2010Q3

REPORT INFORMATION
  Report Type: 
  Country: None (occurrence: None)
  Receive Date: 20100812
  Receipt Date: 20100802
  Transmission Date: 20110219
  Serious: Yes (Other)
  Sender: FDA-Public Use
  Company Number: PHHY2010DE46774

PATIENT
  Sex: Female
  Weight: 72 kg

DRUGS (9)
  1. ICANDRA [Suspect]
     Indication: TYPE 2 DIABETES MELLITUS
     Dosage: 1 DF, BID
     Route: 048
     Dates: start: 20091215, end: 20100518
  2. PROVAS [Suspect]
     Indication: HYPERTENSION
     Dosage: 0.5 DF, BID
     Route: 048
  3. BISOPROLOL [Concomitant]
     Indication: HYPERTENSION
     Dosage: 1 DF, QD
     Route: 048
  4. CALCIUM D3 [Concomitant]
     Indication: OSTEOPOROSIS
     Dosage: 1 DF, BID
     Route: 048
  5. ALLOPURINOL [Concomitant]
     Indication: HYPERURICAEMIA
     Dosage: 1 DF, QD
     Route: 048
  6. XIPAMIDE [Concomitant]
     Indication: HYPERTENSION
     Dosage: 1 DF, QD
     Route: 048
  7. DICLOFENAC SODIUM [Concomitant]
     Indication: SPINAL DISORDER
     Route: 048
  8. METFORMIN HCL [Concomitant]
     Indication: DIABETES MELLITUS
     Dosage: 1 DF, QD
     Route: 048
     Dates: start: 20100518
  9. ACTOS [Concomitant]
     Indication: DIABETES MELLITUS
     Dosage: UNK
     Route: 048
     Dates: start: 20100614

REACTIONS (3)
  - BLOOD AMYLASE INCREASED [None]
  - BLOOD GLUCOSE INCREASED [None]
  - LIPASE INCREASED [None]
